FAERS Safety Report 13925327 (Version 2)
Quarter: 2017Q3

REPORT INFORMATION
  Report Type: Spontaneous
  Country: US (occurrence: US)
  Receive Date: 20170831
  Receipt Date: 20170905
  Transmission Date: 20171127
  Serious: Yes (Other)
  Sender: FDA-Public Use
  Company Number: US-SA-2017SA156824

PATIENT
  Sex: Female

DRUGS (1)
  1. ICY HOT (MENTHOL) [Suspect]
     Active Substance: MENTHOL
     Dosage: FORM-PATCH
     Route: 065
     Dates: start: 20170818

REACTIONS (7)
  - Erythema [Unknown]
  - Burns second degree [Unknown]
  - Oedema peripheral [Unknown]
  - Blister [Unknown]
  - Discomfort [Unknown]
  - Paraesthesia [Unknown]
  - Pain [Unknown]

NARRATIVE: CASE EVENT DATE: 20170818
